FAERS Safety Report 4311357-4 (Version None)
Quarter: 2004Q1

REPORT INFORMATION
  Report Type: 
  Country: None (occurrence: None)
  Receive Date: 20040302
  Receipt Date: 20030603
  Transmission Date: 20041129
  Serious: Yes (Hospitalization)
  Sender: FDA-Public Use
  Company Number: BDI-005189

PATIENT
  Sex: Female

DRUGS (2)
  1. ISOVUE-370 [Suspect]
     Indication: ABDOMINAL PAIN
     Dosage: 120 ML ONCE IV
     Route: 042
     Dates: start: 20030603, end: 20030603
  2. ISOVUE-370 [Suspect]
     Indication: COMPUTERISED TOMOGRAM
     Dosage: 120 ML ONCE IV
     Route: 042
     Dates: start: 20030603, end: 20030603

REACTIONS (4)
  - DYSPNOEA [None]
  - RESPIRATORY DISTRESS [None]
  - STRIDOR [None]
  - URTICARIA [None]
